FAERS Safety Report 24969332 (Version 1)
Quarter: 2025Q1

REPORT INFORMATION
  Report Type: Spontaneous
  Country: CN (occurrence: CN)
  Receive Date: 20250214
  Receipt Date: 20250214
  Transmission Date: 20250408
  Serious: Yes (Other)
  Sender: JOHNSON AND JOHNSON
  Company Number: CN-JNJFOC-20250217564

PATIENT
  Age: 20 Year
  Sex: Male
  Weight: 55 kg

DRUGS (2)
  1. DARZALEX [Suspect]
     Active Substance: DARATUMUMAB
     Indication: Leukaemia
     Route: 041
     Dates: start: 20241225, end: 20241225
  2. SODIUM CHLORIDE [Concomitant]
     Active Substance: SODIUM CHLORIDE

REACTIONS (7)
  - Hypersensitivity [Recovered/Resolved]
  - Chest discomfort [Recovered/Resolved]
  - Dyspnoea [Recovered/Resolved]
  - Temperature intolerance [Recovered/Resolved]
  - Chills [Recovered/Resolved]
  - Infusion related reaction [Recovered/Resolved]
  - Off label use [Unknown]

NARRATIVE: CASE EVENT DATE: 20241225
